FAERS Safety Report 10083428 (Version 1)
Quarter: 2014Q2

REPORT INFORMATION
  Report Type: Spontaneous
  Country: US (occurrence: None)
  Receive Date: 20140416
  Receipt Date: 20140416
  Transmission Date: 20141212
  Serious: Yes (Hospitalization)
  Sender: FDA-Public Use
  Company Number: None

PATIENT
  Age: 94 Year
  Sex: Male

DRUGS (3)
  1. COUMADIN [Suspect]
     Indication: ATRIAL FIBRILLATION
     Route: 048
  2. SEPTRA D.S. [Suspect]
     Indication: BLADDER CATHETERISATION
     Route: 048
  3. PROSCAR [Concomitant]

REACTIONS (2)
  - Asthenia [None]
  - Blood urine present [None]
